FAERS Safety Report 9717451 (Version 2)
Quarter: 2015Q3

REPORT INFORMATION
  Report Type: Spontaneous
  Country: US (occurrence: US)
  Receive Date: 20131127
  Receipt Date: 20150803
  Transmission Date: 20151125
  Serious: No
  Sender: FDA-Public Use
  Company Number: US-GILEAD-2009-0019721

PATIENT
  Age: 64 Year
  Sex: Female
  Weight: 53.52 kg

DRUGS (18)
  1. XANAX [Concomitant]
     Active Substance: ALPRAZOLAM
  2. OXYGEN. [Concomitant]
     Active Substance: OXYGEN
  3. SYNTHROID [Concomitant]
     Active Substance: LEVOTHYROXINE SODIUM
  4. TYLENOL [Concomitant]
     Active Substance: ACETAMINOPHEN
  5. LYRICA [Concomitant]
     Active Substance: PREGABALIN
  6. METHADONE [Concomitant]
     Active Substance: METHADONE HYDROCHLORIDE
  7. A-Z MULTIVITAMIN [Concomitant]
  8. NASONEX [Concomitant]
     Active Substance: MOMETASONE FUROATE
  9. COLACE [Concomitant]
     Active Substance: DOCUSATE SODIUM
  10. BL VITAMIN B-12 [Concomitant]
  11. BISOPROLOL FUMARATE. [Concomitant]
     Active Substance: BISOPROLOL FUMARATE
  12. EFFEXOR [Concomitant]
     Active Substance: VENLAFAXINE HYDROCHLORIDE
  13. FLEXERIL [Concomitant]
     Active Substance: CYCLOBENZAPRINE HYDROCHLORIDE
  14. LUNESTA [Concomitant]
     Active Substance: ESZOPICLONE
  15. FISH OIL [Concomitant]
     Active Substance: FISH OIL
  16. LETAIRIS [Suspect]
     Active Substance: AMBRISENTAN
     Indication: PULMONARY ARTERIAL HYPERTENSION
     Route: 048
     Dates: start: 20081023
  17. XOPENEX [Concomitant]
     Active Substance: LEVALBUTEROL HYDROCHLORIDE
  18. PV VITAMIN D [Concomitant]

REACTIONS (3)
  - Throat irritation [Unknown]
  - Dyspnoea [Unknown]
  - Eyelid oedema [Unknown]
